FAERS Safety Report 25949602 (Version 1)
Quarter: 2025Q4

REPORT INFORMATION
  Report Type: Spontaneous
  Country: CA (occurrence: CA)
  Receive Date: 20251022
  Receipt Date: 20251022
  Transmission Date: 20260118
  Serious: Yes (Other)
  Sender: TEVA
  Company Number: CA-TEVA-VS-3384132

PATIENT
  Age: 59 Year
  Sex: Female

DRUGS (1)
  1. PACLITAXEL [Suspect]
     Active Substance: PACLITAXEL
     Indication: Product used for unknown indication
     Dosage: PACLITAXEL INJECTION USP, DOSE FORM: SOLUTION INTRAVENOUS
     Route: 065

REACTIONS (3)
  - Dizziness [Unknown]
  - Unresponsive to stimuli [Unknown]
  - Pulse absent [Unknown]
